FAERS Safety Report 13277975 (Version 3)
Quarter: 2017Q3

REPORT INFORMATION
  Report Type: Spontaneous
  Country: US (occurrence: US)
  Receive Date: 20170228
  Receipt Date: 20170706
  Transmission Date: 20171127
  Serious: Yes (Hospitalization, Other)
  Sender: FDA-Public Use
  Company Number: US-PFIZER INC-2017079247

PATIENT
  Age: 73 Year
  Sex: Female
  Weight: 63.5 kg

DRUGS (4)
  1. ESTRING [Suspect]
     Active Substance: ESTRADIOL
     Indication: VAGINAL DISORDER
     Dosage: UNK, EVERY 3 MONTHS
     Route: 067
     Dates: start: 2016, end: 201609
  2. ESTRING [Suspect]
     Active Substance: ESTRADIOL
     Indication: PREMATURE MENOPAUSE
  3. FLECTOR [Concomitant]
     Active Substance: DICLOFENAC EPOLAMINE
     Indication: BACK DISORDER
     Dosage: UNK, 2X/DAY
     Route: 062
  4. SKELAXIN [Concomitant]
     Active Substance: METAXALONE
     Dosage: UNK

REACTIONS (8)
  - Vulvovaginal discomfort [Recovering/Resolving]
  - Ileus [Recovering/Resolving]
  - Vaginal discharge [Not Recovered/Not Resolved]
  - Uterine cancer [Unknown]
  - Arthropathy [Unknown]
  - Cervix disorder [Unknown]
  - Arthritis [Unknown]
  - Condition aggravated [Unknown]

NARRATIVE: CASE EVENT DATE: 2016
